FAERS Safety Report 5465244-9 (Version None)
Quarter: 2007Q3

REPORT INFORMATION
  Report Type: 
  Country: None (occurrence: None)
  Receive Date: 20070924
  Receipt Date: 20070917
  Transmission Date: 20080115
  Serious: Yes (Disabling)
  Sender: FDA-Public Use
  Company Number: PHNR2007AU01882

PATIENT
  Sex: Female

DRUGS (1)
  1. CAFERGOT [Suspect]
     Indication: HEADACHE
     Dosage: 12 TABLETS, PRN
     Route: 048
     Dates: start: 20061111, end: 20061111

REACTIONS (3)
  - ANXIETY [None]
  - PARAESTHESIA [None]
  - SOMNOLENCE [None]
